FAERS Safety Report 15307072 (Version 1)
Quarter: 2018Q3

REPORT INFORMATION
  Report Type: Report from Study
  Country: None (occurrence: IT)
  Receive Date: 20180822
  Receipt Date: 20180822
  Transmission Date: 20181010
  Serious: Yes (Hospitalization)
  Sender: FDA-Public Use
  Company Number: IT-ABBVIE-18S-083-2454655-00

PATIENT
  Age: 64 Year
  Sex: Male

DRUGS (1)
  1. DUODOPA [Suspect]
     Active Substance: CARBIDOPA\LEVODOPA
     Indication: PARKINSON^S DISEASE
     Dosage: MD: 7,5+3 CR: 2,2 ED: 2,3
     Route: 050
     Dates: start: 20170313

REACTIONS (3)
  - Cardiac arrest [Unknown]
  - General physical health deterioration [Unknown]
  - Pneumonia aspiration [Unknown]

NARRATIVE: CASE EVENT DATE: 201808
